FAERS Safety Report 8246246-6 (Version None)
Quarter: 2012Q1

REPORT INFORMATION
  Report Type: 
  Country: None (occurrence: None)
  Receive Date: 20120330
  Receipt Date: 20120322
  Transmission Date: 20120608
  Serious: Yes (Hospitalization, Other)
  Sender: FDA-Public Use
  Company Number: US-BAYER-2011-063443

PATIENT
  Age: 49 Year
  Sex: Female
  Weight: 113.38 kg

DRUGS (6)
  1. YASMIN [Suspect]
     Indication: CONTRACEPTION
     Dosage: UNK
     Dates: start: 20070701, end: 20080601
  2. LISINOPRIL [Concomitant]
     Dosage: 20 MG, QD
     Route: 048
  3. DARVOCET [Concomitant]
     Dosage: 100 MG, TID
     Route: 048
  4. YAZ [Suspect]
     Indication: CONTRACEPTION
     Dosage: UNK
     Dates: start: 20080901, end: 20090801
  5. FUROSEMIDE [Concomitant]
     Dosage: 20 MG, QD
     Route: 048
  6. K-TAB [Concomitant]
     Dosage: UNK UNK, QD
     Route: 048

REACTIONS (9)
  - INJURY [None]
  - PAIN IN EXTREMITY [None]
  - GALLBLADDER DISORDER [None]
  - PULMONARY EMBOLISM [None]
  - DYSPNOEA [None]
  - FEAR OF DISEASE [None]
  - DEEP VEIN THROMBOSIS [None]
  - EMOTIONAL DISTRESS [None]
  - PAIN [None]
